FAERS Safety Report 10021554 (Version 1)
Quarter: 2014Q1

REPORT INFORMATION
  Report Type: Spontaneous
  Country: US (occurrence: None)
  Receive Date: 20140318
  Receipt Date: 20140318
  Transmission Date: 20141002
  Serious: Yes (Other)
  Sender: FDA-Public Use
  Company Number: None

PATIENT
  Age: 59 Year
  Sex: Female
  Weight: 131.54 kg

DRUGS (1)
  1. CLARITHROMYCIN 500MG WOCKHARDT [Suspect]
     Indication: CELLULITIS
     Dosage: ONE PILL, THREE TIMES DAILY, TAKEN BY MOUTH
     Route: 048
     Dates: start: 20131227, end: 20131230

REACTIONS (6)
  - Anger [None]
  - Anger [None]
  - Abdominal discomfort [None]
  - Gastritis [None]
  - Inflammation [None]
  - Drug interaction [None]
